FAERS Safety Report 4884488-8 (Version None)
Quarter: 2006Q1

REPORT INFORMATION
  Report Type: 
  Country: None (occurrence: None)
  Receive Date: 20060117
  Receipt Date: 20060106
  Transmission Date: 20060701
  Serious: Yes (Hospitalization, Other)
  Sender: FDA-Public Use
  Company Number: KII-2006-0020597

PATIENT
  Age: 56 Year
  Sex: Male
  Weight: 99.8 kg

DRUGS (16)
  1. MORPHINE SULFATE [Suspect]
     Dosage: ORAL
     Route: 048
  2. OLANZAPINE [Suspect]
     Dosage: ORAL
     Route: 048
  3. QUETIAPINE FUMARATE [Suspect]
     Dosage: ORAL
     Route: 048
  4. LORATADINE [Suspect]
     Dosage: ORAL
     Route: 048
  5. LISINOPRIL [Suspect]
     Dosage: ORAL
     Route: 048
  6. CARISOPRODOL [Suspect]
     Dosage: 5600 MG, 5600 MG, SEE TEXT,  ORAL
     Route: 048
  7. BENZATROPINE (BENZATROPINE) [Suspect]
     Dosage: 4 MG, SEE TEXT, ORAL
     Route: 048
  8. ASPIRIN [Suspect]
     Dosage: SEE TEXT, ORAL
     Route: 048
  9. VENLAFAXINE (VENLAFAXINE) [Suspect]
     Dosage: 1200 MG, SEE TEXT, ORAL
     Route: 048
  10. METOPROLOL (METOPROLOL) [Suspect]
     Dosage: 200 MG, SEE TEXT, ORAL
     Route: 048
  11. COUMADIN [Suspect]
     Dosage: 10 MG, SEE TEXT, ORAL
     Route: 048
  12. RANIDITINE (RANITIDINE) [Suspect]
     Dosage: 1200 MG, SEE TEXT, ORAL
     Route: 048
  13. NIASPAN [Suspect]
     Dosage: 8000 MG, SEE TEXT, ORAL
     Route: 048
  14. ACETAMINOPHEN [Suspect]
     Dosage: ORAL
     Route: 048
  15. M.V.I. (NICOTINAMIDE, DEXPANTHENOL, RIBOFLAVIN, THIAMINE HYDROCHLORIDE [Suspect]
     Dosage: SEE TEXT, ORAL
     Route: 048
  16. BENZODIAZEPINE DERIVATIVES [Suspect]

REACTIONS (27)
  - ACTIVATED PARTIAL THROMBOPLASTIN TIME PROLONGED [None]
  - AGITATION [None]
  - ALANINE AMINOTRANSFERASE INCREASED [None]
  - ASPARTATE AMINOTRANSFERASE INCREASED [None]
  - ASTHENIA [None]
  - BLOOD BICARBONATE DECREASED [None]
  - BLOOD CALCIUM DECREASED [None]
  - BLOOD PH DECREASED [None]
  - BODY TEMPERATURE INCREASED [None]
  - DEPRESSED LEVEL OF CONSCIOUSNESS [None]
  - DYSPNOEA [None]
  - GASTROINTESTINAL HAEMORRHAGE [None]
  - HEART RATE INCREASED [None]
  - HYPERKALAEMIA [None]
  - HYPOTENSION [None]
  - HYPOXIA [None]
  - ILEUS [None]
  - INTENTIONAL DRUG MISUSE [None]
  - INTERNATIONAL NORMALISED RATIO INCREASED [None]
  - INTRACARDIAC THROMBUS [None]
  - IRRITABILITY [None]
  - PROTHROMBIN TIME PROLONGED [None]
  - PUPILLARY REFLEX IMPAIRED [None]
  - PUPILS UNEQUAL [None]
  - RALES [None]
  - RENAL FAILURE [None]
  - WHITE BLOOD CELL COUNT INCREASED [None]
